FAERS Safety Report 10462118 (Version 1)
Quarter: 2014Q3

REPORT INFORMATION
  Report Type: Spontaneous
  Country: CA (occurrence: CA)
  Receive Date: 20140918
  Receipt Date: 20140918
  Transmission Date: 20150326
  Serious: Yes (Other)
  Sender: FDA-Public Use
  Company Number: CA-PFIZER INC-2014255995

PATIENT
  Sex: Male

DRUGS (2)
  1. ZOLOFT [Suspect]
     Active Substance: SERTRALINE HYDROCHLORIDE
     Indication: DEPRESSION
     Dosage: 50 MG, DAILY
     Route: 048
  2. ZOLOFT [Suspect]
     Active Substance: SERTRALINE HYDROCHLORIDE
     Indication: POST-TRAUMATIC STRESS DISORDER
     Dosage: 100 MG (TWO 50-MG PILLS), 1X/DAY
     Route: 048

REACTIONS (4)
  - Serum serotonin increased [Recovered/Resolved]
  - Blood pressure increased [Recovered/Resolved]
  - Feeling abnormal [Recovered/Resolved]
  - Blindness [Recovered/Resolved]
